FAERS Safety Report 9331400 (Version 2)
Quarter: 2013Q2

REPORT INFORMATION
  Report Type: Spontaneous
  Country: US (occurrence: US)
  Receive Date: 20130605
  Receipt Date: 20130627
  Transmission Date: 20140414
  Serious: Yes (Other)
  Sender: FDA-Public Use
  Company Number: US-B.I. PHARMACEUTICALS,INC./RIDGEFIELD-2013-BI-15365BP

PATIENT
  Age: 71 Year
  Sex: Female
  Weight: 170.4 kg

DRUGS (17)
  1. TRADJENTA [Suspect]
     Route: 048
  2. LANTUS INSULIN [Concomitant]
     Dosage: FORMULATION: SUBCUTANEOUS,
     Route: 048
  3. GLYBURIDE/ METFORMIN [Concomitant]
     Dosage: STRENGTH: 10/1000MG; DAILY DOSE 20/2000MG
  4. CALCIUM [Concomitant]
  5. CERTRIZINE [Concomitant]
  6. CRESTOR [Concomitant]
     Dosage: 10 MG
  7. LEVOTHYROXINE [Concomitant]
  8. LISINOPRIL [Concomitant]
  9. AMLODIPINE [Concomitant]
  10. VITAMIN C [Concomitant]
  11. VIACTIV [Concomitant]
  12. TYLENOL [Concomitant]
  13. COLACE [Concomitant]
  14. OXYCODONE IMMEDIATE RELEASE [Concomitant]
     Indication: PAIN
  15. SENOKOT [Concomitant]
  16. AMBIEN [Concomitant]
  17. SYNTHROID [Concomitant]

REACTIONS (1)
  - Pancreatic carcinoma [Not Recovered/Not Resolved]
